FAERS Safety Report 10174336 (Version 1)
Quarter: 2014Q2

REPORT INFORMATION
  Report Type: Spontaneous
  Country: US (occurrence: None)
  Receive Date: 20140514
  Receipt Date: 20140514
  Transmission Date: 20141212
  Serious: Yes (Other)
  Sender: FDA-Public Use
  Company Number: None

PATIENT
  Age: 63 Year
  Sex: Female

DRUGS (1)
  1. IMBRUVICA [Suspect]
     Indication: PRODUCT USED FOR UNKNOWN INDICATION
     Dosage: 140 MG TAKE 3 CAPS ONCE DAILY
     Route: 048
     Dates: start: 20140417

REACTIONS (4)
  - Anxiety [None]
  - Feeling abnormal [None]
  - Thinking abnormal [None]
  - Abnormal behaviour [None]
